FAERS Safety Report 9286795 (Version 3)
Quarter: 2013Q3

REPORT INFORMATION
  Report Type: Report from Study
  Country: US (occurrence: US)
  Receive Date: 20130513
  Receipt Date: 20130726
  Transmission Date: 20140515
  Serious: Yes (Other)
  Sender: FDA-Public Use
  Company Number: US-ABBOTT-13P-163-1086189-00

PATIENT
  Age: 69 Year
  Sex: Male
  Weight: 76.73 kg

DRUGS (5)
  1. HUMIRA [Suspect]
     Indication: COLITIS ULCERATIVE
     Dosage: 160 MG ON 24 APR 2013
     Dates: start: 20130424
  2. HUMIRA [Suspect]
     Dates: end: 20130522
  3. OMEPRAZOLE [Concomitant]
     Indication: GASTROOESOPHAGEAL REFLUX DISEASE
  4. ASACOL [Concomitant]
     Indication: COLITIS ULCERATIVE
  5. ANTIINFLAMMATORY AGENTS [Concomitant]
     Indication: PRODUCT USED FOR UNKNOWN INDICATION

REACTIONS (9)
  - Hernia [Not Recovered/Not Resolved]
  - Colonic fistula [Unknown]
  - Intestinal fistula infection [Unknown]
  - Pain [Unknown]
  - Injection site pain [Not Recovered/Not Resolved]
  - Wrong technique in drug usage process [Not Recovered/Not Resolved]
  - Groin pain [Not Recovered/Not Resolved]
  - Pain [Not Recovered/Not Resolved]
  - Drug ineffective [Unknown]
